FAERS Safety Report 13463619 (Version 2)
Quarter: 2017Q2

REPORT INFORMATION
  Report Type: Spontaneous
  Country: US (occurrence: US)
  Receive Date: 20170420
  Receipt Date: 20170503
  Transmission Date: 20170830
  Serious: No
  Sender: FDA-Public Use
  Company Number: US-ACTELION-A-NJ2017-152744

PATIENT
  Age: 55 Year
  Sex: Male

DRUGS (3)
  1. VALCHLOR [Suspect]
     Active Substance: MECHLORETHAMINE
     Indication: MYCOSIS FUNGOIDES
     Dosage: UNK
     Route: 061
     Dates: start: 20170328
  2. TRIAMCINOLONE [Concomitant]
     Active Substance: TRIAMCINOLONE
  3. ASPIRIN. [Concomitant]
     Active Substance: ASPIRIN

REACTIONS (5)
  - Application site discolouration [Unknown]
  - Skin hyperpigmentation [Unknown]
  - Erythema [Unknown]
  - Skin hypopigmentation [Unknown]
  - Therapy partial responder [Unknown]
